FAERS Safety Report 6496028-0 (Version None)
Quarter: 2009Q4

REPORT INFORMATION
  Report Type: 
  Country: None (occurrence: None)
  Receive Date: 20091214
  Receipt Date: 20090930
  Transmission Date: 20100525
  Serious: No
  Sender: FDA-Public Use
  Company Number: US-BRISTOL-MYERS SQUIBB COMPANY-14783690

PATIENT
  Age: 55 Year
  Sex: Male

DRUGS (4)
  1. ABILIFY [Suspect]
     Indication: DEPRESSION
     Dosage: TOOK FOR 1 WEEK
     Route: 048
     Dates: start: 20090814, end: 20090101
  2. ABILIFY [Suspect]
     Indication: MAJOR DEPRESSION
     Dosage: TOOK FOR 1 WEEK
     Route: 048
     Dates: start: 20090814, end: 20090101
  3. LUVOX [Suspect]
  4. CLONAZEPAM [Suspect]

REACTIONS (1)
  - MANIA [None]
